FAERS Safety Report 9060305 (Version 1)
Quarter: 2013Q1

REPORT INFORMATION
  Report Type: Spontaneous
  Country: US (occurrence: None)
  Receive Date: 20130207
  Receipt Date: 20130207
  Transmission Date: 20140127
  Serious: No
  Sender: FDA-Public Use
  Company Number: None

PATIENT
  Age: 73 Year
  Sex: Female
  Weight: 72.12 kg

DRUGS (1)
  1. PROLIA 60MG/ML AMGEN [Suspect]
     Indication: BONE DISORDER
     Route: 058
     Dates: start: 20121003

REACTIONS (4)
  - Pain in extremity [None]
  - Myalgia [None]
  - Gait disturbance [None]
  - Back pain [None]
